FAERS Safety Report 12476317 (Version 1)
Quarter: 2016Q2

REPORT INFORMATION
  Report Type: Other
  Country: None (occurrence: US)
  Receive Date: 20160617
  Receipt Date: 20160617
  Transmission Date: 20160815
  Serious: Yes (Other)
  Sender: FDA-Public Use
  Company Number: US-GUTHY-RENKER LLC-1053919

PATIENT
  Age: 68 Year
  Sex: Female

DRUGS (3)
  1. OTHER UNDISCLOSED MEDICATIONS [Concomitant]
  2. IT COSMETICS BYE BYE FOUNDATION SPF 50+ [Suspect]
     Active Substance: TITANIUM DIOXIDE\ZINC OXIDE
     Indication: PROPHYLAXIS AGAINST SOLAR RADIATION
     Route: 061
     Dates: start: 20160521
  3. CENTRUM OVER 50 [Concomitant]

REACTIONS (3)
  - Lip swelling [Recovered/Resolved]
  - Urticaria [None]
  - Nasal pruritus [None]

NARRATIVE: CASE EVENT DATE: 20160522
